FAERS Safety Report 25906901 (Version 1)
Quarter: 2025Q4

REPORT INFORMATION
  Report Type: Spontaneous
  Country: US (occurrence: None)
  Receive Date: 20251009
  Receipt Date: 20251009
  Transmission Date: 20260117
  Serious: Yes (Hospitalization)
  Sender: FDA-CTU
  Company Number: None

PATIENT
  Sex: Male

DRUGS (2)
  1. DALFAMPRIDINE [Suspect]
     Active Substance: DALFAMPRIDINE
     Indication: Multiple sclerosis
     Dosage: OTHER FREQUENCY : EVERY 12 HOURS;?
     Route: 048
     Dates: start: 20230912
  2. VUMERITY [Suspect]
     Active Substance: DIROXIMEL FUMARATE
     Indication: Multiple sclerosis
     Dosage: OTHER FREQUENCY : TWICE DAILY;?
     Route: 048
     Dates: start: 20250617

REACTIONS (3)
  - Urinary tract infection [None]
  - Therapy interrupted [None]
  - Product use complaint [None]
